FAERS Safety Report 7157557-X (Version None)
Quarter: 2010Q4

REPORT INFORMATION
  Report Type: 
  Country: None (occurrence: None)
  Receive Date: 20101214
  Receipt Date: 20100223
  Transmission Date: 20110411
  Serious: No
  Sender: FDA-Public Use
  Company Number: US-ASTRAZENECA-2010SE07902

PATIENT
  Age: 991 Month
  Sex: Male
  Weight: 68.5 kg

DRUGS (3)
  1. CRESTOR [Suspect]
     Route: 048
     Dates: start: 20091001
  2. CRESTOR [Suspect]
     Route: 048
     Dates: start: 20091201
  3. CRESTOR [Suspect]
     Dosage: CUTTING THE 10 MG TABLETS IN HALF AND TAKING CRESTOR 5MG EVERY OTHER DAY
     Route: 048
     Dates: start: 20100201

REACTIONS (1)
  - MYALGIA [None]
